FAERS Safety Report 15775305 (Version 2)
Quarter: 2019Q1

REPORT INFORMATION
  Report Type: Report from Study
  Country: US (occurrence: US)
  Receive Date: 20181231
  Receipt Date: 20190107
  Transmission Date: 20190417
  Serious: Yes (Death)
  Sender: FDA-Public Use
  Company Number: US-ROCHE-2237449

PATIENT
  Sex: Male
  Weight: 312.35 kg

DRUGS (2)
  1. ESBRIET [Suspect]
     Active Substance: PIRFENIDONE
     Route: 048
     Dates: start: 20180602
  2. ESBRIET [Suspect]
     Active Substance: PIRFENIDONE
     Indication: PULMONARY FIBROSIS
     Route: 048
     Dates: start: 20180611, end: 20181227

REACTIONS (4)
  - Emphysema [Fatal]
  - Hypoxia [Fatal]
  - Bronchitis chronic [Fatal]
  - Interstitial lung disease [Fatal]
